FAERS Safety Report 24706161 (Version 1)
Quarter: 2024Q4

REPORT INFORMATION
  Report Type: Spontaneous
  Country: CY (occurrence: CY)
  Receive Date: 20241206
  Receipt Date: 20241206
  Transmission Date: 20250115
  Serious: Yes (Life-Threatening, Other)
  Sender: ARGENX BVBA
  Company Number: CY-Medison-000798

PATIENT

DRUGS (1)
  1. VYVGART [Suspect]
     Active Substance: EFGARTIGIMOD ALFA-FCAB
     Indication: Myasthenia gravis
     Dosage: 10 MG/KG, 1/WEEK CYCLE OF 4 INFUSIONS
     Route: 042
     Dates: start: 2023

REACTIONS (1)
  - Myasthenia gravis [Recovered/Resolved]
